FAERS Safety Report 9527742 (Version 1)
Quarter: 2013Q1

REPORT INFORMATION
  Report Type: Spontaneous
  Country: US (occurrence: None)
  Receive Date: 20130314
  Receipt Date: 20130314
  Transmission Date: 20140127
  Serious: No
  Sender: FDA-Public Use
  Company Number: 1211USA007681

PATIENT
  Age: 58 Year
  Sex: Male

DRUGS (2)
  1. VICTRELIS (BOCEPREVIR) CAPSULE, 200 MG [Suspect]
     Indication: HEPATITIS C
     Dosage: 800 MG, TID, PO
     Route: 048
  2. PEGASYS (PEGINTERFERON ALFA-2A) [Suspect]

REACTIONS (3)
  - Sepsis [None]
  - Anaemia [None]
  - Neutropenia [None]
